FAERS Safety Report 13829979 (Version 1)
Quarter: 2017Q3

REPORT INFORMATION
  Report Type: Spontaneous
  Country: US (occurrence: US)
  Receive Date: 20170803
  Receipt Date: 20170803
  Transmission Date: 20171127
  Serious: Yes (Hospitalization)
  Sender: FDA-Public Use
  Company Number: US-TEVA-793363USA

PATIENT
  Age: 61 Year
  Sex: Male
  Weight: 68.1 kg

DRUGS (1)
  1. FENTORA [Suspect]
     Active Substance: FENTANYL CITRATE
     Indication: BREAKTHROUGH PAIN
     Dosage: EVERY 6-8 HOURS
     Route: 002

REACTIONS (2)
  - Calculus bladder [Unknown]
  - Pain [Unknown]

NARRATIVE: CASE EVENT DATE: 201707
